FAERS Safety Report 6928509-7 (Version None)
Quarter: 2010Q3

REPORT INFORMATION
  Report Type: 
  Country: None (occurrence: None)
  Receive Date: 20100817
  Receipt Date: 20100804
  Transmission Date: 20110219
  Serious: Yes (Hospitalization)
  Sender: FDA-Public Use
  Company Number: US-ELI_LILLY_AND_COMPANY-US201007003039

PATIENT
  Sex: Male
  Weight: 56 kg

DRUGS (1)
  1. OLANZAPINE + FLUOXETINE HCL [Suspect]
     Indication: MAJOR DEPRESSION
     Dates: start: 20100525

REACTIONS (1)
  - HOSPITALISATION [None]
